FAERS Safety Report 10239590 (Version 1)
Quarter: 2014Q2

REPORT INFORMATION
  Report Type: Report from Study
  Country: US (occurrence: US)
  Receive Date: 20140616
  Receipt Date: 20140616
  Transmission Date: 20141212
  Serious: Yes (Hospitalization)
  Sender: FDA-Public Use
  Company Number: US-ABBVIE-14P-163-1245096-00

PATIENT
  Age: 45 Year
  Sex: Female
  Weight: 117.13 kg

DRUGS (3)
  1. HUMIRA [Suspect]
     Indication: PSORIATIC ARTHROPATHY
     Dates: start: 20121102, end: 201310
  2. TIROSINT [Concomitant]
     Indication: GOITRE
  3. MULTIVITAMIN [Concomitant]
     Indication: VITAMIN SUPPLEMENTATION

REACTIONS (2)
  - Breast mass [Recovered/Resolved]
  - Breast cancer [Not Recovered/Not Resolved]
